FAERS Safety Report 7083931-6 (Version None)
Quarter: 2010Q4

REPORT INFORMATION
  Report Type: 
  Country: None (occurrence: None)
  Receive Date: 20101104
  Receipt Date: 20100322
  Transmission Date: 20110411
  Serious: No
  Sender: FDA-Public Use
  Company Number: US-ABBOTT-10P-163-0635092-00

PATIENT
  Sex: Male
  Weight: 70.37 kg

DRUGS (3)
  1. KALETRA [Suspect]
     Indication: HIV INFECTION
     Dates: start: 20040101
  2. BACTRIM [Concomitant]
     Indication: INFECTION PROPHYLAXIS
  3. UNKNOWN HIV MEDICATION [Concomitant]
     Indication: HIV INFECTION

REACTIONS (1)
  - DEPRESSION [None]
